FAERS Safety Report 25877857 (Version 1)
Quarter: 2025Q4

REPORT INFORMATION
  Report Type: Spontaneous
  Country: US (occurrence: None)
  Receive Date: 20251002
  Receipt Date: 20251002
  Transmission Date: 20260119
  Serious: Yes (Hospitalization)
  Sender: FDA-CTU
  Company Number: None

PATIENT
  Age: 47 Year
  Sex: Male
  Weight: 154.8 kg

DRUGS (10)
  1. JARDIANCE [Suspect]
     Active Substance: EMPAGLIFLOZIN
     Indication: Type 2 diabetes mellitus
     Dosage: FREQUENCY : DAILY;?
     Route: 048
     Dates: start: 20181207, end: 20250413
  2. AMLODIPINE [Concomitant]
     Active Substance: AMLODIPINE BESYLATE
  3. ESCITALOPRAM [Concomitant]
     Active Substance: ESCITALOPRAM OXALATE
  4. BASAGLAR [Concomitant]
     Active Substance: INSULIN GLARGINE
  5. HUMALOG [Concomitant]
     Active Substance: INSULIN LISPRO
  6. IRBESARTAN [Concomitant]
     Active Substance: IRBESARTAN
  7. METOCLOPRAMIDE [Concomitant]
     Active Substance: METOCLOPRAMIDE
  8. OMEPRAZOLE [Concomitant]
     Active Substance: OMEPRAZOLE
  9. PRAVASTATIN [Concomitant]
     Active Substance: PRAVASTATIN
  10. PROMETHAZINE [Concomitant]
     Active Substance: PROMETHAZINE HYDROCHLORIDE

REACTIONS (8)
  - Nausea [None]
  - Vomiting [None]
  - Abdominal discomfort [None]
  - Drug ineffective [None]
  - Euglycaemic diabetic ketoacidosis [None]
  - Leukocytosis [None]
  - Acute kidney injury [None]
  - Metabolic acidosis [None]

NARRATIVE: CASE EVENT DATE: 20250413
